FAERS Safety Report 17685541 (Version 1)
Quarter: 2020Q2

REPORT INFORMATION
  Report Type: Spontaneous
  Country: US (occurrence: US)
  Receive Date: 20200420
  Receipt Date: 20200420
  Transmission Date: 20200714
  Serious: Yes (Disabling, Other)
  Sender: FDA-Public Use
  Company Number: None

PATIENT
  Age: 51 Year
  Sex: Female
  Weight: 84.15 kg

DRUGS (4)
  1. VITAMIN D3 [Concomitant]
     Active Substance: CHOLECALCIFEROL
  2. ASPIRIN. [Concomitant]
     Active Substance: ASPIRIN
  3. VITAMINS [Concomitant]
     Active Substance: VITAMINS
  4. MULTIHANCE [Suspect]
     Active Substance: GADOBENATE DIMEGLUMINE
     Indication: MAGNETIC RESONANCE IMAGING
     Dosage: ?          QUANTITY:27 INJECTION(S);OTHER FREQUENCY:ONE TIME INJECTION;?
     Route: 042
     Dates: start: 20170315, end: 20191010

REACTIONS (6)
  - Pain [None]
  - Vertigo [None]
  - Cognitive disorder [None]
  - Gadolinium deposition disease [None]
  - Balance disorder [None]
  - Skin lesion [None]

NARRATIVE: CASE EVENT DATE: 20190917
